FAERS Safety Report 19399217 (Version 1)
Quarter: 2021Q2

REPORT INFORMATION
  Report Type: Spontaneous
  Country: IE (occurrence: IE)
  Receive Date: 20210610
  Receipt Date: 20210610
  Transmission Date: 20210717
  Serious: Yes (Other)
  Sender: FDA-Public Use
  Company Number: IE-MYLANLABS-2021M1033428

PATIENT
  Age: 40 Year
  Sex: Female

DRUGS (4)
  1. ASCORBIC ACID. [Suspect]
     Active Substance: ASCORBIC ACID
     Indication: PRODUCT USED FOR UNKNOWN INDICATION
     Dosage: CONTAINED HMW?PEG AS EXCIPIENT
     Route: 065
  2. KLEAN?PREP [Suspect]
     Active Substance: ELECTROLYTES NOS\POLYETHYLENE GLYCOL 3350
     Indication: LAXATIVE SUPPORTIVE CARE
     Dosage: CONTAINED PEG?3350 AS EXCIPIENT
     Route: 065
  3. EMLA [Suspect]
     Active Substance: LIDOCAINE\PRILOCAINE
     Indication: ANAESTHESIA PROCEDURE
     Dosage: CONTAINED HMW?PEG AS EXCIPIENT
     Route: 061
  4. VIMOVO [Suspect]
     Active Substance: ESOMEPRAZOLE MAGNESIUM\NAPROXEN
     Indication: PRODUCT USED FOR UNKNOWN INDICATION
     Dosage: CONTAINED PEG?8000 AS EXCIPIENT
     Route: 065

REACTIONS (1)
  - Hypersensitivity [Recovered/Resolved]
